FAERS Safety Report 4738833-4 (Version None)
Quarter: 2005Q3

REPORT INFORMATION
  Report Type: 
  Country: None (occurrence: None)
  Receive Date: 20050804
  Receipt Date: 20050722
  Transmission Date: 20060218
  Serious: Yes (Other)
  Sender: FDA-Public Use
  Company Number: 2005JP001490

PATIENT
  Age: 45 Year
  Sex: Male

DRUGS (6)
  1. PROGRAF [Suspect]
     Indication: RENAL TRANSPLANT
     Dosage: SEE IMAGE
     Route: 041
     Dates: start: 20050221, end: 20050222
  2. PROGRAF [Suspect]
     Indication: RENAL TRANSPLANT
     Dosage: SEE IMAGE
     Route: 041
     Dates: start: 20050223
  3. CELLCEPT [Suspect]
  4. MEDROL [Suspect]
  5. LOSARTAN POTASSIUM [Suspect]
  6. FAMOTIDINE [Suspect]

REACTIONS (4)
  - ACTIVATED PARTIAL THROMBOPLASTIN TIME PROLONGED [None]
  - DISEASE RECURRENCE [None]
  - THROMBOPHLEBITIS SUPERFICIAL [None]
  - VENOUS THROMBOSIS LIMB [None]
